FAERS Safety Report 8190113-3 (Version None)
Quarter: 2012Q1

REPORT INFORMATION
  Report Type: 
  Country: None (occurrence: None)
  Receive Date: 20120307
  Receipt Date: 20120307
  Transmission Date: 20120608
  Serious: Yes (Hospitalization)
  Sender: FDA-Public Use
  Company Number: None

PATIENT
  Age: 53 Year
  Sex: Male
  Weight: 94 kg

DRUGS (1)
  1. SAPHRIS [Suspect]
     Indication: SCHIZOPHRENIA
     Dates: start: 20110910, end: 20110921

REACTIONS (2)
  - CARDIAC ARREST [None]
  - PRESYNCOPE [None]
